FAERS Safety Report 8967003 (Version 1)
Quarter: 2012Q4

REPORT INFORMATION
  Report Type: 
  Country: FR (occurrence: FR)
  Receive Date: 20121214
  Receipt Date: 20121214
  Transmission Date: 20130627
  Serious: Yes (Other)
  Sender: FDA-Public Use
  Company Number: FR-AMGEN-FRASP2012078794

PATIENT
  Age: 32 Year
  Sex: Male

DRUGS (1)
  1. ENBREL [Suspect]
     Indication: PSORIASIS
     Dosage: 50 mg, weekly
     Dates: start: 2009

REACTIONS (4)
  - Neuromyopathy [Unknown]
  - Neurodegenerative disorder [Unknown]
  - Muscular weakness [Unknown]
  - Gait disturbance [Unknown]
